FAERS Safety Report 15954527 (Version 1)
Quarter: 2019Q1

REPORT INFORMATION
  Report Type: Report from Study
  Country: ES (occurrence: ES)
  Receive Date: 20190212
  Receipt Date: 20190212
  Transmission Date: 20190417
  Serious: Yes (Hospitalization)
  Sender: FDA-Public Use
  Company Number: ES-MYLANLABS-2019M1011967

PATIENT
  Age: 51 Year
  Sex: Female

DRUGS (3)
  1. METAMIZOL                          /06276701/ [Suspect]
     Active Substance: METAMIZOLE
     Indication: PAIN
     Dosage: 2GR/8H || DOSIS UNIDAD FRECUENCIA: 6 G-GRAMOS || DOSIS POR TOMA: 2 G-GRAMOS
     Route: 042
     Dates: start: 20150909, end: 20150923
  2. DEXKETOPROFENO                     /01363801/ [Suspect]
     Active Substance: DEXKETOPROFEN
     Indication: PAIN
     Dosage: 50MG/8H || DOSIS UNIDAD FRECUENCIA: 150 MG-MILIGRAMOS || DOSIS POR TOMA: 50 MG-MILIGRAMOS
     Route: 042
     Dates: start: 20150913, end: 20150925
  3. IBUPROFEN. [Suspect]
     Active Substance: IBUPROFEN
     Indication: SURGERY
     Dosage: UNK
     Route: 048
     Dates: start: 20150914, end: 20150923

REACTIONS (1)
  - Drug reaction with eosinophilia and systemic symptoms [Recovered/Resolved]

NARRATIVE: CASE EVENT DATE: 20150914
